FAERS Safety Report 6397500-4 (Version None)
Quarter: 2009Q4

REPORT INFORMATION
  Report Type: 
  Country: None (occurrence: None)
  Receive Date: 20091012
  Receipt Date: 20091007
  Transmission Date: 20100525
  Serious: Yes (Hospitalization)
  Sender: FDA-Public Use
  Company Number: US-BRISTOL-MYERS SQUIBB COMPANY-14810410

PATIENT
  Age: 76 Year
  Sex: Female
  Weight: 103 kg

DRUGS (10)
  1. WARFARIN SODIUM [Suspect]
  2. EXEMESTANE [Concomitant]
     Indication: BREAST CANCER
     Route: 048
     Dates: start: 20090514
  3. ADVAIR DISKUS 100/50 [Concomitant]
  4. CITALOPRAM HYDROBROMIDE [Concomitant]
  5. DOCUSATE SODIUM [Concomitant]
  6. FERROUS SULFATE TAB [Concomitant]
  7. METOPROLOL [Concomitant]
  8. OMEPRAZOLE [Concomitant]
  9. TIOTROPIUM BROMIDE [Concomitant]
  10. VITAMIN D3 [Concomitant]

REACTIONS (2)
  - CORONARY ARTERY DISEASE [None]
  - MYOCARDIAL ISCHAEMIA [None]
